FAERS Safety Report 6545339-9 (Version None)
Quarter: 2010Q1

REPORT INFORMATION
  Report Type: 
  Country: None (occurrence: None)
  Receive Date: 20100121
  Receipt Date: 20100114
  Transmission Date: 20100710
  Serious: Yes (Death, Other)
  Sender: FDA-Public Use
  Company Number: GB-TEVA-191103ISR

PATIENT
  Age: 29 Year
  Sex: Female

DRUGS (3)
  1. MIRTAZAPINE [Suspect]
     Indication: DEPRESSION
     Route: 048
     Dates: start: 20080630
  2. MIRTAZAPINE [Suspect]
     Route: 048
  3. MIRTAZAPINE [Concomitant]

REACTIONS (1)
  - DIABETIC KETOACIDOSIS [None]
